FAERS Safety Report 9062255 (Version 3)
Quarter: 2013Q2

REPORT INFORMATION
  Report Type: Report from Study
  Country: DK (occurrence: DK)
  Receive Date: 20130128
  Receipt Date: 20130418
  Transmission Date: 20140414
  Serious: Yes (Hospitalization)
  Sender: FDA-Public Use
  Company Number: DK-ASTELLAS-2013US000905

PATIENT
  Age: 67 Year
  Sex: Male
  Weight: 87 kg

DRUGS (4)
  1. ENZALUTAMIDE [Suspect]
     Indication: PROSTATE CANCER
     Dosage: 160 MG, UID/QD
     Route: 048
     Dates: start: 20111201, end: 20130118
  2. ENZALUTAMIDE [Suspect]
     Dosage: 160 MG, UID/QD
     Route: 048
     Dates: start: 20130121
  3. PRADAXA [Concomitant]
     Indication: ARRHYTHMIA
     Dosage: 150 MG, BID
     Route: 048
     Dates: start: 20121115
  4. SELO-ZOK [Concomitant]
     Indication: ARRHYTHMIA
     Dosage: 86 MG, UID/QD
     Route: 048
     Dates: start: 20121115

REACTIONS (1)
  - Arrhythmia [Recovered/Resolved]
